FAERS Safety Report 8741760 (Version 2)
Quarter: 2012Q4

REPORT INFORMATION
  Report Type: 
  Country: US (occurrence: US)
  Receive Date: 20120824
  Receipt Date: 20120828
  Transmission Date: 20130627
  Serious: No
  Sender: FDA-Public Use
  Company Number: US-BIOGENIDEC-2012BI032695

PATIENT
  Age: 51 None
  Sex: Male

DRUGS (1)
  1. TYSABRI [Suspect]
     Indication: MULTIPLE SCLEROSIS
     Route: 042
     Dates: start: 20071003

REACTIONS (24)
  - Somnolence [Unknown]
  - Speech disorder [Not Recovered/Not Resolved]
  - Musculoskeletal stiffness [Not Recovered/Not Resolved]
  - Mobility decreased [Unknown]
  - Muscle tightness [Unknown]
  - Dysphonia [Not Recovered/Not Resolved]
  - Tremor [Not Recovered/Not Resolved]
  - Hypoaesthesia [Unknown]
  - Increased upper airway secretion [Not Recovered/Not Resolved]
  - Weight decreased [Unknown]
  - Dry mouth [Unknown]
  - Aphagia [Unknown]
  - Hyperhidrosis [Unknown]
  - Depressed level of consciousness [Unknown]
  - Confusional arousal [Unknown]
  - Rhinorrhoea [Unknown]
  - Decreased appetite [Not Recovered/Not Resolved]
  - Pain [Not Recovered/Not Resolved]
  - Neck mass [Not Recovered/Not Resolved]
  - Eye colour change [Not Recovered/Not Resolved]
  - Influenza [Recovered/Resolved]
  - Chills [Unknown]
  - Dizziness [Unknown]
  - Cystitis [Unknown]
